FAERS Safety Report 6120433-5 (Version None)
Quarter: 2009Q1

REPORT INFORMATION
  Report Type: 
  Country: None (occurrence: None)
  Receive Date: 20090316
  Receipt Date: 20090316
  Transmission Date: 20090719
  Serious: Yes (Other)
  Sender: FDA-Public Use
  Company Number: None

PATIENT
  Sex: Female
  Weight: 110.2241 kg

DRUGS (1)
  1. COPAXONE [Suspect]
     Indication: MULTIPLE SCLEROSIS
     Dosage: 20 MG/ML 1 PER DAY SUBCU
     Route: 058
     Dates: start: 20090222

REACTIONS (5)
  - DIZZINESS [None]
  - DYSPNOEA [None]
  - FLUSHING [None]
  - HYPERVENTILATION [None]
  - ILL-DEFINED DISORDER [None]
